FAERS Safety Report 5729467-3 (Version None)
Quarter: 2008Q2

REPORT INFORMATION
  Report Type: 
  Country: None (occurrence: None)
  Receive Date: 20080430
  Receipt Date: 20080218
  Transmission Date: 20081010
  Serious: No
  Sender: FDA-Public Use
  Company Number: 2008PV034296

PATIENT
  Age: 66 Year
  Sex: Female

DRUGS (4)
  1. SYMLIN [Suspect]
     Indication: TYPE 2 DIABETES MELLITUS
     Dosage: 120 MCG;TID;SC
     Route: 057
     Dates: start: 20060101
  2. COUMADIN [Suspect]
     Indication: CARDIAC PACEMAKER INSERTION
     Dosage: HS; PO
     Route: 048
     Dates: start: 20050101
  3. METFORMIN [Concomitant]
  4. LANTUS [Concomitant]

REACTIONS (2)
  - INJECTION SITE BRUISING [None]
  - INJECTION SITE PAIN [None]
